FAERS Safety Report 23940759 (Version 3)
Quarter: 2024Q3

REPORT INFORMATION
  Report Type: Spontaneous
  Country: US (occurrence: None)
  Receive Date: 20240605
  Receipt Date: 20240719
  Transmission Date: 20241016
  Serious: Yes (Hospitalization, Other)
  Sender: ASTRAZENECA
  Company Number: 2024A126285

PATIENT
  Age: 20568 Day
  Sex: Female

DRUGS (2)
  1. TEZSPIRE [Suspect]
     Active Substance: TEZEPELUMAB-EKKO
     Indication: Asthma
     Dates: start: 20230412, end: 20231211
  2. TEZSPIRE [Suspect]
     Active Substance: TEZEPELUMAB-EKKO
     Indication: Asthma
     Dates: start: 20230412, end: 20231211

REACTIONS (5)
  - Cerebrovascular accident [Recovered/Resolved with Sequelae]
  - Hemiparesis [Unknown]
  - Dysarthria [Unknown]
  - Vascular occlusion [Unknown]
  - Facial paralysis [Unknown]

NARRATIVE: CASE EVENT DATE: 20231211
